FAERS Safety Report 14033297 (Version 4)
Quarter: 2018Q2

REPORT INFORMATION
  Report Type: Spontaneous
  Country: FR (occurrence: FR)
  Receive Date: 20171003
  Receipt Date: 20180522
  Transmission Date: 20180711
  Serious: Yes (Hospitalization, Other)
  Sender: FDA-Public Use
  Company Number: FR-ACCORD-059471

PATIENT
  Age: 42 Year
  Sex: Male

DRUGS (5)
  1. SODIUM CHLORIDE. [Concomitant]
     Active Substance: SODIUM CHLORIDE
     Route: 042
  2. FOLINIC ACID [Concomitant]
     Active Substance: LEUCOVORIN
     Indication: GASTROOESOPHAGEAL CANCER
  3. 5% GLUCOSE [Concomitant]
     Active Substance: DEXTROSE
     Dosage: GLUCOSE 5% ,?500 ML??ALSO RECEIVED 500 ML IV
     Route: 040
  4. FLUOROURACIL. [Suspect]
     Active Substance: FLUOROURACIL
     Indication: OESOPHAGEAL ADENOCARCINOMA
     Dosage: FOLFOX,?400 MG/M2, I.E. 920 MG TOTAL DOSE IN IV BOLUS IN 100 ML OF 5% GLUCOSE,
     Route: 040
  5. OXALIPLATIN. [Suspect]
     Active Substance: OXALIPLATIN
     Indication: OESOPHAGEAL ADENOCARCINOMA
     Dosage: 85 MG/M2, I.E. 190 MG TOTAL DOSE IN 500 ML OF 5% GLUCOSE SOLUTION
     Route: 042

REACTIONS (7)
  - Administration site extravasation [Unknown]
  - Vocal cord paralysis [Unknown]
  - Off label use [Unknown]
  - Cardiotoxicity [Unknown]
  - Chest discomfort [Unknown]
  - Dysphonia [Recovering/Resolving]
  - Bronchospasm [Unknown]
